FAERS Safety Report 8492494-X (Version None)
Quarter: 2012Q3

REPORT INFORMATION
  Report Type: 
  Country: None (occurrence: None)
  Receive Date: 20120706
  Receipt Date: 20120703
  Transmission Date: 20120928
  Serious: No
  Sender: FDA-Public Use
  Company Number: US-PFIZER INC-2012144817

PATIENT
  Sex: Male

DRUGS (5)
  1. MAXZIDE [Concomitant]
     Dosage: UNK, 1/2 PILL PER DAY
  2. FISH OIL [Concomitant]
     Dosage: 1000 MG, PER DAY
  3. CELEBREX [Suspect]
     Indication: BURSITIS
  4. CELEBREX [Suspect]
     Indication: MUSCULOSKELETAL PAIN
     Dosage: 200 MG, A DAY
     Route: 048
  5. METOPROLOL [Concomitant]
     Dosage: 50 MG, PER DAY

REACTIONS (7)
  - PRURITUS [None]
  - FLUSHING [None]
  - URTICARIA [None]
  - SWELLING FACE [None]
  - ERYTHEMA [None]
  - AURICULAR SWELLING [None]
  - CHEST DISCOMFORT [None]
